FAERS Safety Report 16964578 (Version 4)
Quarter: 2019Q4

REPORT INFORMATION
  Report Type: Spontaneous
  Country: CN (occurrence: CN)
  Receive Date: 20191028
  Receipt Date: 20191120
  Transmission Date: 20200122
  Serious: Yes (Death)
  Sender: FDA-Public Use
  Company Number: CN-B.I. PHARMACEUTICALS,INC./RIDGEFIELD-2019-MI-109936

PATIENT
  Age: 83 Year
  Sex: Male

DRUGS (1)
  1. PRADAXA [Suspect]
     Active Substance: DABIGATRAN ETEXILATE MESYLATE
     Indication: ATRIAL FIBRILLATION
     Route: 048

REACTIONS (4)
  - Cerebrovascular accident [Fatal]
  - Embolism [Fatal]
  - Myocardial infarction [Fatal]
  - Product quality issue [Unknown]
